FAERS Safety Report 9886014 (Version 1)
Quarter: 2014Q1

REPORT INFORMATION
  Report Type: Spontaneous
  Country: BR (occurrence: BR)
  Receive Date: 20140210
  Receipt Date: 20140210
  Transmission Date: 20141002
  Serious: Yes (Other)
  Sender: FDA-Public Use
  Company Number: PHHY2012BR118339

PATIENT
  Age: 65 Year
  Sex: Female

DRUGS (7)
  1. TOFRANIL [Suspect]
     Indication: DEPRESSION
     Dosage: 3 DF, DAILY
     Route: 048
     Dates: start: 1978
  2. TOFRANIL [Suspect]
     Indication: TREMOR
     Dosage: 2 DF, DAILY
     Route: 048
  3. TOFRANIL [Suspect]
     Dosage: 1 DF, DAILY
     Route: 048
  4. NORTRIPTYLINE [Suspect]
     Indication: DEPRESSION
     Dosage: 1 DF, DAILY
  5. NORTRIPTYLINE [Suspect]
     Indication: TREMOR
  6. BROMAZEPAM [Suspect]
     Indication: NERVOUS SYSTEM DISORDER
     Dosage: 1.5 DF, DAILY
     Route: 048
  7. LEXOTAN [Suspect]
     Indication: NERVOUS SYSTEM DISORDER
     Dosage: 2 DF, DAILY
     Route: 048

REACTIONS (7)
  - Cardiac disorder [Not Recovered/Not Resolved]
  - Dyspnoea [Not Recovered/Not Resolved]
  - Gait disturbance [Not Recovered/Not Resolved]
  - Nervousness [Not Recovered/Not Resolved]
  - Feeling of despair [Not Recovered/Not Resolved]
  - Fear [Not Recovered/Not Resolved]
  - Speech disorder [Not Recovered/Not Resolved]
